FAERS Safety Report 12777560 (Version 2)
Quarter: 2017Q4

REPORT INFORMATION
  Report Type: Spontaneous
  Country: US (occurrence: US)
  Receive Date: 20160924
  Receipt Date: 20171003
  Transmission Date: 20180320
  Serious: No
  Sender: FDA-Public Use
  Company Number: US-TEVA-671017USA

PATIENT
  Sex: Female
  Weight: 48.58 kg

DRUGS (1)
  1. KLONOPIN [Suspect]
     Active Substance: CLONAZEPAM
     Route: 065

REACTIONS (1)
  - Dermatitis herpetiformis [Unknown]

NARRATIVE: CASE EVENT DATE: 2010
